FAERS Safety Report 12979464 (Version 2)
Quarter: 2016Q4

REPORT INFORMATION
  Report Type: Spontaneous
  Country: BE (occurrence: BE)
  Receive Date: 20161128
  Receipt Date: 20161201
  Transmission Date: 20170207
  Serious: Yes (Other)
  Sender: FDA-Public Use
  Company Number: BE-PFIZER INC-2016547230

PATIENT
  Age: 53 Year
  Sex: Female

DRUGS (1)
  1. PANTOMED [Suspect]
     Active Substance: DEXPANTHENOL
     Indication: CHRONIC GASTRITIS
     Dosage: 20 MG, BID

REACTIONS (1)
  - Hypokalaemia [Recovered/Resolved]
